FAERS Safety Report 8501452-8 (Version None)
Quarter: 2012Q3

REPORT INFORMATION
  Report Type: 
  Country: None (occurrence: None)
  Receive Date: 20120710
  Receipt Date: 20120629
  Transmission Date: 20120928
  Serious: Yes (Hospitalization)
  Sender: FDA-Public Use
  Company Number: JP-TEVA-2011003240

PATIENT
  Sex: Female
  Weight: 52 kg

DRUGS (5)
  1. ALLOPURINOL [Concomitant]
     Dates: start: 20110517, end: 20110524
  2. BENDAMUSTINE HYDROCHLORIDE [Suspect]
     Indication: B-CELL LYMPHOMA
     Dosage: 260 MILLIGRAM;
     Route: 042
     Dates: start: 20110518, end: 20110519
  3. TRIMETHOPRIM + SULFAMETHOXAZOLE [Suspect]
     Indication: PROPHYLAXIS
     Dosage: 4 GRAM;
     Route: 048
     Dates: start: 20110521, end: 20110607
  4. NICERGOLINE [Concomitant]
  5. IFENPRODIL TARTRATE [Concomitant]

REACTIONS (4)
  - NEUTROPHIL COUNT DECREASED [None]
  - STEVENS-JOHNSON SYNDROME [None]
  - EOSINOPHIL COUNT INCREASED [None]
  - BLOOD CREATINE PHOSPHOKINASE INCREASED [None]
